FAERS Safety Report 9495111 (Version 1)
Quarter: 2013Q3

REPORT INFORMATION
  Report Type: Spontaneous
  Country: US (occurrence: US)
  Receive Date: 20130903
  Receipt Date: 20130903
  Transmission Date: 20140515
  Serious: Yes (Other)
  Sender: FDA-Public Use
  Company Number: US-ASTRAZENECA-2013SE65827

PATIENT
  Age: 82 Year
  Sex: Female
  Weight: 51.7 kg

DRUGS (4)
  1. SYMBICORT [Suspect]
     Indication: ASTHMA
     Dosage: 160/4.5 MCG, 2 PUFFS BID
     Route: 055
  2. SYMBICORT [Suspect]
     Indication: ASTHMA
     Dosage: 1 PUFF, TWO TIMES A DAY
     Route: 055
     Dates: start: 20130814
  3. LISINOPRIL [Suspect]
     Indication: BLOOD PRESSURE ABNORMAL
     Route: 048
  4. SIMVASTATIN [Concomitant]
     Indication: CAROTID ARTERY DISEASE

REACTIONS (10)
  - Cerebrovascular accident [Unknown]
  - Nervous system disorder [Unknown]
  - Body height decreased [Unknown]
  - Asthma [Unknown]
  - Coeliac disease [Unknown]
  - Weight decreased [Unknown]
  - Drug intolerance [Unknown]
  - Feeling abnormal [Recovered/Resolved]
  - Intentional drug misuse [Unknown]
  - Hip fracture [Unknown]
